FAERS Safety Report 14266316 (Version 7)
Quarter: 2018Q3

REPORT INFORMATION
  Report Type: Spontaneous
  Country: NL (occurrence: NL)
  Receive Date: 20171210
  Receipt Date: 20180928
  Transmission Date: 20181010
  Serious: Yes (Death, Life-Threatening, Hospitalization, Other)
  Sender: FDA-Public Use
  Company Number: PHHY2017NL126176

PATIENT
  Age: 64 Year
  Sex: Male

DRUGS (18)
  1. POTASSIUM CHLORIDE. [Suspect]
     Active Substance: POTASSIUM CHLORIDE
     Indication: INTERNAL HAEMORRHAGE
     Dosage: UNK
     Route: 042
  2. SODIUM CHLORIDE. [Suspect]
     Active Substance: SODIUM CHLORIDE
     Dosage: 2000 ML, UNK
     Route: 042
  3. ASCORBIC ACID. [Concomitant]
     Active Substance: ASCORBIC ACID
     Indication: WERNICKE^S ENCEPHALOPATHY
     Dosage: UNK
     Route: 065
  4. AMOXICILLIN/CLAVULANIC ACID [Concomitant]
     Active Substance: AMOXICILLIN\CLAVULANIC ACID
     Indication: SEPSIS
  5. LACTATED RINGERS SOLUTION [Suspect]
     Active Substance: CALCIUM CHLORIDE\POTASSIUM CHLORIDE\SODIUM CHLORIDE\SODIUM LACTATE
     Indication: INTERNAL HAEMORRHAGE
     Dosage: 500 ML, UNK
     Route: 042
  6. TOBRAMYCIN. [Concomitant]
     Active Substance: TOBRAMYCIN
     Indication: SEPSIS
  7. VITAMIN B [Concomitant]
     Active Substance: VITAMIN B
     Indication: WERNICKE^S ENCEPHALOPATHY
     Dosage: UNK
     Route: 065
  8. GLUCOSE [Suspect]
     Active Substance: DEXTROSE
     Dosage: 2.5 %, UNK
     Route: 042
  9. GLUCOSE [Suspect]
     Active Substance: DEXTROSE
     Indication: HYPOVOLAEMIA
     Dosage: 5 %, UNK
     Route: 041
  10. TOBRAMYCIN. [Concomitant]
     Active Substance: TOBRAMYCIN
     Indication: ENTEROCOCCAL INFECTION
     Dosage: UNK
     Route: 065
  11. ENALAPRIL, HYDROCHLOROTHIAZIDE [Suspect]
     Active Substance: ENALAPRIL\HYDROCHLOROTHIAZIDE
     Indication: PRODUCT USED FOR UNKNOWN INDICATION
     Dosage: ENALAPRIL 20 MG HYDROCHLOROTHIAZIDE 12.5 MG
     Route: 048
  12. SODIUM CHLORIDE. [Suspect]
     Active Substance: SODIUM CHLORIDE
     Indication: BLOOD SODIUM INCREASED
     Dosage: 1500 ML, UNK
     Route: 042
  13. THIAMINE [Concomitant]
     Active Substance: THIAMINE
     Indication: WERNICKE^S ENCEPHALOPATHY
     Dosage: UNK
     Route: 065
  14. POTASSIUM CHLORIDE. [Suspect]
     Active Substance: POTASSIUM CHLORIDE
     Indication: HYPOKALAEMIA
  15. GLUCOSE [Suspect]
     Active Substance: DEXTROSE
     Indication: INTERNAL HAEMORRHAGE
     Dosage: UNK
     Route: 042
  16. SODIUM CHLORIDE. [Suspect]
     Active Substance: SODIUM CHLORIDE
     Indication: INTERNAL HAEMORRHAGE
     Dosage: 0.45 %, UNK
     Route: 042
  17. AMOXICILLIN. [Concomitant]
     Active Substance: AMOXICILLIN
     Indication: ENTEROCOCCAL INFECTION
     Dosage: UNK
     Route: 065
  18. AMOXICILLIN/CLAVULANIC ACID [Concomitant]
     Active Substance: AMOXICILLIN\CLAVULANIC ACID
     Indication: ENTEROCOCCAL INFECTION
     Route: 065

REACTIONS (14)
  - Acute kidney injury [Fatal]
  - Hepatic enzyme increased [Fatal]
  - Neurological decompensation [Fatal]
  - Hypovolaemia [Unknown]
  - Hyponatraemia [Fatal]
  - Locked-in syndrome [Fatal]
  - Speech disorder [Fatal]
  - Hypokalaemia [Unknown]
  - Eyelid ptosis [Fatal]
  - Osmotic demyelination syndrome [Fatal]
  - Ataxia [Fatal]
  - Balance disorder [Fatal]
  - Tremor [Fatal]
  - Dysphagia [Fatal]
